FAERS Safety Report 20636693 (Version 1)
Quarter: 2022Q1

REPORT INFORMATION
  Report Type: Report from Study
  Country: TW (occurrence: TW)
  Receive Date: 20220325
  Receipt Date: 20220325
  Transmission Date: 20220424
  Serious: Yes (Life-Threatening, Hospitalization, Other)
  Sender: FDA-Public Use
  Company Number: TW-PFIZER INC-202200416860

PATIENT
  Age: 24 Year
  Sex: Male

DRUGS (11)
  1. KETAMINE HYDROCHLORIDE [Suspect]
     Active Substance: KETAMINE HYDROCHLORIDE
     Dosage: UNK
  2. ALPRAZOLAM [Suspect]
     Active Substance: ALPRAZOLAM
  3. COCAINE [Suspect]
     Active Substance: COCAINE
     Dosage: UNK
  4. CANNABIS SATIVA SUBSP. INDICA TOP [Suspect]
     Active Substance: CANNABIS SATIVA SUBSP. INDICA TOP
     Dosage: UNK
  5. 4-METHOXYMETHAMPHETAMINE [Suspect]
     Active Substance: 4-METHOXYMETHAMPHETAMINE
  6. TENAMFETAMINE [Suspect]
     Active Substance: TENAMFETAMINE
  7. MIDOMAFETAMINE [Suspect]
     Active Substance: MIDOMAFETAMINE
  8. NORKETAMINE [Suspect]
     Active Substance: NORKETAMINE
  9. OXYBATE [Suspect]
     Active Substance: OXYBATE
  10. BENZOYLECGONINE [Suspect]
     Active Substance: BENZOYLECGONINE
  11. ESTAZOLAM [Suspect]
     Active Substance: ESTAZOLAM

REACTIONS (7)
  - Drug abuse [Unknown]
  - Suicide attempt [Unknown]
  - Suicidal behaviour [Unknown]
  - Aggression [Unknown]
  - Hallucination, auditory [Unknown]
  - Hallucination, visual [Unknown]
  - Disorientation [Unknown]
